FAERS Safety Report 24875187 (Version 1)
Quarter: 2025Q1

REPORT INFORMATION
  Report Type: Spontaneous
  Country: US (occurrence: None)
  Receive Date: 20250122
  Receipt Date: 20250122
  Transmission Date: 20250409
  Serious: Yes (Other)
  Sender: CMP PHARMA
  Company Number: US-CMPPHARMA-000462

PATIENT
  Age: 30 Year
  Sex: Female

DRUGS (1)
  1. TRIANEX [Suspect]
     Active Substance: TRIAMCINOLONE ACETONIDE
     Indication: Immunoglobulin G4 related disease
     Route: 026

REACTIONS (3)
  - Retinal artery occlusion [Recovering/Resolving]
  - Off label use [Unknown]
  - Visual acuity reduced [Recovering/Resolving]
